FAERS Safety Report 6978070-6 (Version None)
Quarter: 2010Q3

REPORT INFORMATION
  Report Type: 
  Country: None (occurrence: None)
  Receive Date: 20100913
  Receipt Date: 20100903
  Transmission Date: 20110219
  Serious: No
  Sender: FDA-Public Use
  Company Number: KR-JNJFOC-20100902022

PATIENT
  Age: 77 Year
  Sex: Female

DRUGS (1)
  1. DURAGESIC-100 [Suspect]
     Indication: PAIN MANAGEMENT
     Dosage: HALF PATCH APPLIED
     Route: 062

REACTIONS (3)
  - DRUG ADMINISTRATION ERROR [None]
  - HEADACHE [None]
  - PRURITUS [None]
